FAERS Safety Report 19076415 (Version 6)
Quarter: 2021Q4

REPORT INFORMATION
  Report Type: Spontaneous
  Country: US (occurrence: US)
  Receive Date: 20210331
  Receipt Date: 20211201
  Transmission Date: 20220303
  Serious: Yes (Other)
  Sender: FDA-Public Use
  Company Number: US-SANOFI-00504268

PATIENT
  Age: 77 Year
  Sex: Female

DRUGS (3)
  1. AMBIEN [Suspect]
     Active Substance: ZOLPIDEM TARTRATE
     Indication: Anxiety
     Dosage: 0.5 DF, QD AT NIGHT
     Route: 065
  2. AMBIEN [Suspect]
     Active Substance: ZOLPIDEM TARTRATE
     Indication: Insomnia
     Dosage: 5 MG, HS (QHS)
     Route: 065
  3. AMBIEN [Suspect]
     Active Substance: ZOLPIDEM TARTRATE
     Dosage: 10 MG, UNK
     Route: 065

REACTIONS (9)
  - Drug dependence [Unknown]
  - Swelling face [Unknown]
  - Somnolence [Unknown]
  - Palpitations [Unknown]
  - Product odour abnormal [Unknown]
  - Wrong technique in product usage process [Unknown]
  - Product use issue [Unknown]
  - Suspected product contamination [Unknown]
  - Poor quality product administered [Unknown]

NARRATIVE: CASE EVENT DATE: 20210426
